FAERS Safety Report 4597519-X (Version None)
Quarter: 2005Q1

REPORT INFORMATION
  Report Type: 
  Country: None (occurrence: None)
  Receive Date: 20050228
  Receipt Date: 20050228
  Transmission Date: 20050727
  Serious: No
  Sender: FDA-Public Use
  Company Number: None

PATIENT
  Age: 76 Year
  Sex: Female
  Weight: 65.318 kg

DRUGS (1)
  1. K-DUR 10 [Suspect]
     Indication: HYPOKALAEMIA
     Dosage: 20 MEQ

REACTIONS (7)
  - AGITATION [None]
  - ARRHYTHMIA [None]
  - ASTHENIA [None]
  - DIZZINESS [None]
  - DRY MOUTH [None]
  - NAUSEA [None]
  - RASH PRURITIC [None]
